FAERS Safety Report 7416849-7 (Version None)
Quarter: 2011Q2

REPORT INFORMATION
  Report Type: 
  Country: None (occurrence: None)
  Receive Date: 20110408
  Receipt Date: 20110329
  Transmission Date: 20111010
  Serious: Yes (Other)
  Sender: FDA-Public Use
  Company Number: DSA_45278_2011

PATIENT
  Age: 68 Year
  Sex: Female

DRUGS (1)
  1. DILTIAZEM [Suspect]
     Indication: PRODUCT USED FOR UNKNOWN INDICATION
     Dosage: (DF)

REACTIONS (6)
  - CONSTIPATION [None]
  - ABDOMINAL DISTENSION [None]
  - DYSPNOEA [None]
  - ACTIVITIES OF DAILY LIVING IMPAIRED [None]
  - OEDEMA PERIPHERAL [None]
  - MEMORY IMPAIRMENT [None]
